FAERS Safety Report 9337351 (Version 2)
Quarter: 2013Q2

REPORT INFORMATION
  Report Type: Spontaneous
  Country: JP (occurrence: JP)
  Receive Date: 20130607
  Receipt Date: 20130619
  Transmission Date: 20140414
  Serious: Yes (Hospitalization)
  Sender: FDA-Public Use
  Company Number: JP-GLAXOSMITHKLINE-B0891551A

PATIENT
  Age: 35 Year
  Sex: Female
  Weight: 56 kg

DRUGS (5)
  1. VALTREX [Suspect]
     Indication: GENITAL HERPES
     Route: 048
     Dates: start: 20130409
  2. LOXONIN [Concomitant]
     Indication: GENITAL HERPES
     Route: 048
     Dates: start: 20130409
  3. ARASENA-A [Concomitant]
     Indication: GENITAL HERPES
     Route: 061
     Dates: start: 20130409
  4. PREMARIN [Concomitant]
     Route: 048
  5. LUTORAL [Concomitant]
     Route: 048

REACTIONS (3)
  - Abortion missed [Not Recovered/Not Resolved]
  - Genital haemorrhage [Recovered/Resolved]
  - Exposure during pregnancy [Unknown]
